FAERS Safety Report 16088293 (Version 1)
Quarter: 2019Q1

REPORT INFORMATION
  Report Type: Spontaneous
  Country: US (occurrence: US)
  Receive Date: 20190319
  Receipt Date: 20190319
  Transmission Date: 20190418
  Serious: No
  Sender: FDA-Public Use
  Company Number: US-TEVA-2019-US-1019924

PATIENT
  Sex: Female

DRUGS (2)
  1. CLONAZEPAM ACTAVIS [Suspect]
     Active Substance: CLONAZEPAM
     Indication: BLOOD PRESSURE MEASUREMENT
  2. CLONAZEPAM ACTAVIS [Suspect]
     Active Substance: CLONAZEPAM
     Indication: ANXIETY
     Dosage: .5 MILLIGRAM DAILY;

REACTIONS (8)
  - Somnolence [Unknown]
  - Drug ineffective [Unknown]
  - Product substitution issue [Unknown]
  - Violence-related symptom [Unknown]
  - Back pain [Unknown]
  - Diarrhoea [Unknown]
  - Chest discomfort [Unknown]
  - Panic attack [Unknown]
